FAERS Safety Report 7253707-5 (Version None)
Quarter: 2011Q1

REPORT INFORMATION
  Report Type: 
  Country: None (occurrence: None)
  Receive Date: 20110129
  Receipt Date: 20100128
  Transmission Date: 20110831
  Serious: No
  Sender: FDA-Public Use
  Company Number: US-ABBOTT-10P-163-0623377-00

PATIENT
  Sex: Female
  Weight: 86.26 kg

DRUGS (9)
  1. WARFARIN SODIUM [Concomitant]
     Indication: CARDIAC DISORDER
  2. URAMAXIN CREAM [Concomitant]
     Indication: ONYCHOMYCOSIS
     Route: 061
  3. KETOCONAZOLE [Concomitant]
     Indication: ONYCHOMYCOSIS
     Route: 061
  4. OMEPRAZOLE [Concomitant]
     Indication: GASTROOESOPHAGEAL REFLUX DISEASE
  5. PREDNISONE [Concomitant]
     Indication: ANKYLOSING SPONDYLITIS
  6. HUMIRA [Suspect]
     Indication: ANKYLOSING SPONDYLITIS
     Route: 058
     Dates: start: 20090101
  7. ZETIA [Concomitant]
     Indication: BLOOD CHOLESTEROL INCREASED
     Dosage: DOSE UNKNOWN
  8. LIPITOR [Concomitant]
     Indication: BLOOD CHOLESTEROL INCREASED
     Dosage: DOSE UNKNOWN
  9. COLCHICINE [Concomitant]
     Indication: ANKYLOSING SPONDYLITIS

REACTIONS (5)
  - PAIN IN EXTREMITY [None]
  - GAIT DISTURBANCE [None]
  - INJECTION SITE HAEMATOMA [None]
  - X-RAY ABNORMAL [None]
  - INJECTION SITE SWELLING [None]
